FAERS Safety Report 4461447-0 (Version None)
Quarter: 2004Q3

REPORT INFORMATION
  Report Type: 
  Country: None (occurrence: None)
  Receive Date: 20040914
  Receipt Date: 20040830
  Transmission Date: 20050211
  Serious: Yes (Hospitalization)
  Sender: FDA-Public Use
  Company Number: THYM-10267

PATIENT
  Age: 58 Year
  Sex: Male
  Weight: 121 kg

DRUGS (29)
  1. THYMOGLOBULIN [Suspect]
     Indication: RENAL TRANSPLANT
     Dosage: 1.25 MG/KG QD IV
     Route: 042
     Dates: start: 20040728, end: 20040731
  2. INSULIN [Concomitant]
  3. ACETAMINOPHEN [Concomitant]
  4. DIPHENHYDRAMINE HCL [Concomitant]
  5. SODIUM CHLORIDE INJ [Concomitant]
  6. CEFAZOLIN SODIUM [Concomitant]
  7. METHYLPREDNISOLONE [Concomitant]
  8. MYCOPHENOLATE [Concomitant]
  9. FAMOTIDINE [Concomitant]
  10. MORPHINE SULFATE [Concomitant]
  11. NEOSPORIN [Concomitant]
  12. TACROLIMUS [Concomitant]
  13. LABETOLOL HCL [Concomitant]
  14. METOCLOPRAMIDE [Concomitant]
  15. OPIUM AND BELLADONNA [Concomitant]
  16. CLOTRIMAZOLE [Concomitant]
  17. DOCUSATE CALCIUM [Concomitant]
  18. HEPARIN SODIUM [Concomitant]
  19. BACTRIM DS [Concomitant]
  20. VALGANCICLOVIR [Concomitant]
  21. BISACODYL [Concomitant]
  22. GABAPENTIN [Concomitant]
  23. LORTAB [Concomitant]
  24. MEPERIDINE HCL [Concomitant]
  25. PROMETHAZINE HCL [Concomitant]
  26. AMLODIPINE BESYLATE [Concomitant]
  27. PAROXETINE HYDROCHLORIDE [Concomitant]
  28. PREDNISONE [Concomitant]
  29. NEURONTIN [Concomitant]

REACTIONS (14)
  - ABDOMINAL TENDERNESS [None]
  - BACTERIA URINE [None]
  - BLOOD CREATININE INCREASED [None]
  - COMPLICATIONS OF TRANSPLANTED KIDNEY [None]
  - HAEMATURIA [None]
  - MUCOUS MEMBRANE DISORDER [None]
  - PERINEPHRIC COLLECTION [None]
  - PNEUMONIA [None]
  - POST PROCEDURAL COMPLICATION [None]
  - PYREXIA [None]
  - RHINORRHOEA [None]
  - SINUS CONGESTION [None]
  - URINARY TRACT INFECTION [None]
  - URINE LEUKOCYTE ESTERASE POSITIVE [None]
